FAERS Safety Report 12960298 (Version 1)
Quarter: 2016Q4

REPORT INFORMATION
  Report Type: Spontaneous
  Country: IN (occurrence: IN)
  Receive Date: 20161121
  Receipt Date: 20161121
  Transmission Date: 20170207
  Serious: Yes (Hospitalization)
  Sender: FDA-Public Use
  Company Number: IN-IMPAX LABORATORIES, INC-2016-IPXL-01555

PATIENT
  Age: 58 Year
  Sex: Male

DRUGS (2)
  1. BACLOFEN. [Suspect]
     Active Substance: BACLOFEN
     Indication: HICCUPS
     Dosage: 10 MG, 2 /DAY
     Route: 065
  2. PANTOPRAZOLE [Concomitant]
     Active Substance: PANTOPRAZOLE SODIUM
     Indication: HICCUPS
     Dosage: 40 MG, 1 /DAY
     Route: 065

REACTIONS (2)
  - Off label use [Unknown]
  - Toxic encephalopathy [Recovered/Resolved]
